FAERS Safety Report 9000537 (Version 1)
Quarter: 2013Q1

REPORT INFORMATION
  Report Type: Spontaneous
  Country: US (occurrence: US)
  Receive Date: 20130107
  Receipt Date: 20130107
  Transmission Date: 20140127
  Serious: Yes (Hospitalization, Other)
  Sender: FDA-Public Use
  Company Number: US-ACCORD-015826

PATIENT
  Age: 53 Year
  Sex: Male

DRUGS (1)
  1. TACROLIMUS [Suspect]
     Indication: LIVER TRANSPLANT

REACTIONS (5)
  - Diffuse large B-cell lymphoma [Recovering/Resolving]
  - Renal failure acute [Recovering/Resolving]
  - Cryoglobulinaemia [Unknown]
  - Anaemia [Unknown]
  - Epstein-Barr viraemia [Recovering/Resolving]
